FAERS Safety Report 21850937 (Version 2)
Quarter: 2023Q1

REPORT INFORMATION
  Report Type: Report from Study
  Country: GB (occurrence: GB)
  Receive Date: 20230111
  Receipt Date: 20230210
  Transmission Date: 20230418
  Serious: No
  Sender: FDA-Public Use
  Company Number: GB-GBT-019223

PATIENT
  Sex: Male

DRUGS (3)
  1. VOXELOTOR [Suspect]
     Active Substance: VOXELOTOR
     Indication: Haemolytic anaemia
     Dosage: 90 TABLETS PER BOTTLE, 1 BOTTLE (1 MONTH SUPPLY)
     Dates: start: 20220719
  2. VOXELOTOR [Suspect]
     Active Substance: VOXELOTOR
     Indication: Haemolytic anaemia
  3. VOXELOTOR [Suspect]
     Active Substance: VOXELOTOR
     Indication: Haemolytic anaemia

REACTIONS (2)
  - Diarrhoea [Recovered/Resolved]
  - Off label use [Unknown]
